FAERS Safety Report 11864281 (Version 2)
Quarter: 2016Q1

REPORT INFORMATION
  Report Type: Spontaneous
  Country: US (occurrence: US)
  Receive Date: 20151223
  Receipt Date: 20160111
  Transmission Date: 20160526
  Serious: Yes (Other)
  Sender: FDA-Public Use
  Company Number: US-PFIZER INC-2015459748

PATIENT
  Age: 52 Year
  Sex: Female
  Weight: 127 kg

DRUGS (3)
  1. PREDNISONE. [Concomitant]
     Active Substance: PREDNISONE
     Dosage: TAKING ZERO IN THE MORNING AND 5MG AT NIGHT
  2. XELJANZ [Suspect]
     Active Substance: TOFACITINIB CITRATE
     Dosage: UNK
  3. PREDNISONE. [Concomitant]
     Active Substance: PREDNISONE
     Dosage: TAKING 5MG IN THE MORNING AND 10MG AT NIGHT

REACTIONS (4)
  - Urinary retention [Unknown]
  - Intentional product misuse [Unknown]
  - Nausea [Unknown]
  - Pain in extremity [Unknown]
